FAERS Safety Report 5343779-7 (Version None)
Quarter: 2007Q2

REPORT INFORMATION
  Report Type: 
  Country: None (occurrence: None)
  Receive Date: 20070604
  Receipt Date: 20070530
  Transmission Date: 20071010
  Serious: Yes (Hospitalization)
  Sender: FDA-Public Use
  Company Number: JP-SP-2007-01996

PATIENT
  Age: 63 Year
  Sex: Female

DRUGS (1)
  1. IMMUCYST [Suspect]
     Indication: BLADDER CANCER
     Route: 043

REACTIONS (6)
  - ARTHRALGIA [None]
  - CONJUNCTIVITIS [None]
  - PYELONEPHRITIS [None]
  - PYREXIA [None]
  - REITER'S SYNDROME [None]
  - URETHRITIS [None]
